FAERS Safety Report 6248411-6 (Version None)
Quarter: 2009Q2

REPORT INFORMATION
  Report Type: 
  Country: None (occurrence: None)
  Receive Date: 20090629
  Receipt Date: 20090624
  Transmission Date: 20091009
  Serious: Yes (Death)
  Sender: FDA-Public Use
  Company Number: PHHY2009MX24835

PATIENT
  Sex: Female

DRUGS (1)
  1. ACLASTA [Suspect]
     Indication: OSTEOPOROSIS
     Dosage: 5 MG/100 ML
     Dates: start: 20070906

REACTIONS (4)
  - DECREASED ACTIVITY [None]
  - DECREASED APPETITE [None]
  - DISCOMFORT [None]
  - PANCREATIC CARCINOMA [None]
